FAERS Safety Report 5842003-6 (Version None)
Quarter: 2008Q3

REPORT INFORMATION
  Report Type: 
  Country: None (occurrence: None)
  Receive Date: 20080812
  Receipt Date: 20080804
  Transmission Date: 20090109
  Serious: Yes (Hospitalization)
  Sender: FDA-Public Use
  Company Number: JP-ASTRAZENECA-2008AP06084

PATIENT
  Age: 72 Year
  Sex: Male

DRUGS (10)
  1. OMEPRAZOLE [Suspect]
     Indication: REFLUX OESOPHAGITIS
     Route: 048
     Dates: start: 20080703, end: 20080731
  2. ACECOL [Concomitant]
     Route: 048
     Dates: end: 20080801
  3. CONIEL [Concomitant]
     Route: 048
  4. CARDENALIN [Concomitant]
     Dosage: ADMINISTERED 0.5 MG IN THE MORNING, 0.5 MG AROUND AT NOON, AND 1.5 MG IN THE EVENING.
     Route: 048
     Dates: end: 20080801
  5. SELBEX [Concomitant]
     Route: 048
  6. ZYLORIC [Concomitant]
     Route: 048
  7. CALTAN [Concomitant]
     Route: 048
  8. ALFAROL [Concomitant]
     Route: 048
  9. ARGAMATE [Concomitant]
     Route: 048
     Dates: end: 20080801
  10. KREMEZIN [Concomitant]
     Route: 048
     Dates: end: 20080801

REACTIONS (2)
  - ANAEMIA [None]
  - RENAL IMPAIRMENT [None]
